FAERS Safety Report 9311978 (Version 1)
Quarter: 2013Q2

REPORT INFORMATION
  Report Type: Spontaneous
  Country: GR (occurrence: GR)
  Receive Date: 20130528
  Receipt Date: 20130528
  Transmission Date: 20140414
  Serious: Yes (Hospitalization, Other)
  Sender: FDA-Public Use
  Company Number: GR-ASTELLAS-2013US005579

PATIENT
  Age: 83 Year
  Sex: Female

DRUGS (5)
  1. TARCEVA [Suspect]
     Indication: LUNG ADENOCARCINOMA
     Dosage: UNK
     Route: 065
  2. AVASTIN /01555201/ [Suspect]
     Indication: LUNG ADENOCARCINOMA
     Dosage: UNK
     Route: 065
     Dates: start: 201112
  3. AVASTIN /01555201/ [Suspect]
     Dosage: UNK
     Route: 065
  4. ALIMTA [Suspect]
     Indication: LUNG ADENOCARCINOMA
     Dosage: UNK
     Route: 065
     Dates: start: 201112
  5. ALIMTA [Suspect]
     Dosage: UNK
     Route: 065

REACTIONS (4)
  - Intestinal perforation [Not Recovered/Not Resolved]
  - Lower limb fracture [Unknown]
  - Fall [Unknown]
  - Malignant neoplasm progression [Unknown]
